FAERS Safety Report 8032434-0 (Version None)
Quarter: 2012Q1

REPORT INFORMATION
  Report Type: 
  Country: None (occurrence: None)
  Receive Date: 20120110
  Receipt Date: 20120104
  Transmission Date: 20120608
  Serious: Yes (Hospitalization)
  Sender: FDA-Public Use
  Company Number: NL-JNJFOC-20120101546

PATIENT
  Sex: Female
  Weight: 56.02 kg

DRUGS (21)
  1. DOXORUBICIN HCL [Suspect]
     Indication: DIFFUSE LARGE B-CELL LYMPHOMA
     Route: 042
  2. CYCLOPHOSPHAMIDE [Suspect]
     Indication: DIFFUSE LARGE B-CELL LYMPHOMA
     Route: 042
  3. FUROSEMIDE [Concomitant]
     Route: 065
  4. SULFASALAZINE [Concomitant]
     Route: 065
  5. ALENDRONATE SODIUM [Concomitant]
     Route: 065
  6. NITROFURANTOIN [Concomitant]
     Route: 065
  7. RITUXIMAB [Suspect]
     Route: 042
     Dates: start: 20110729
  8. BECLOMETHASONE DIPROPIONATE [Concomitant]
     Route: 065
  9. PREDNISONE TAB [Suspect]
     Indication: DIFFUSE LARGE B-CELL LYMPHOMA
     Route: 048
     Dates: start: 20110729
  10. VINCRISTINE [Suspect]
     Indication: DIFFUSE LARGE B-CELL LYMPHOMA
     Route: 042
  11. NEUPOGEN [Suspect]
     Indication: DIFFUSE LARGE B-CELL LYMPHOMA
     Route: 058
  12. ENALAPRIL MALEATE [Concomitant]
     Route: 065
  13. NEUPOGEN [Suspect]
     Route: 058
     Dates: start: 20110730
  14. CYCLOPHOSPHAMIDE [Suspect]
     Route: 042
     Dates: start: 20110729
  15. FLUCONAZOLE [Concomitant]
     Route: 065
  16. RITUXIMAB [Suspect]
     Indication: DIFFUSE LARGE B-CELL LYMPHOMA
     Route: 042
  17. PREDNISONE TAB [Suspect]
     Route: 048
  18. FOLIUMZUUR [Concomitant]
     Route: 065
  19. DOXORUBICIN HCL [Suspect]
     Route: 042
     Dates: start: 20110729
  20. VINCRISTINE [Suspect]
     Route: 042
     Dates: start: 20110729
  21. TRAMADOL HYDROCHLORIDE [Concomitant]
     Route: 065

REACTIONS (2)
  - FEBRILE NEUTROPENIA [None]
  - UROSEPSIS [None]
